FAERS Safety Report 8615235-1 (Version None)
Quarter: 2012Q3

REPORT INFORMATION
  Report Type: 
  Country: None (occurrence: None)
  Receive Date: 20120823
  Receipt Date: 20120821
  Transmission Date: 20120928
  Serious: Yes (Other)
  Sender: FDA-Public Use
  Company Number: US-PFIZER INC-2012205476

PATIENT
  Age: 55 Year
  Sex: Male
  Weight: 78.005 kg

DRUGS (9)
  1. CHANTIX [Suspect]
     Dosage: 1 MG, 2X/DAY
     Route: 048
     Dates: start: 20120101, end: 20120820
  2. DAYPRO [Concomitant]
     Indication: DIABETIC NEUROPATHY
     Dosage: UNK
  3. TRILEPTAL [Concomitant]
     Dosage: UNK
  4. METHADONE [Concomitant]
     Indication: PAIN
     Dosage: UNK
  5. LAMICTAL [Concomitant]
     Dosage: UNK
  6. MEVACOR [Concomitant]
     Dosage: UNK
  7. CHANTIX [Suspect]
     Indication: SMOKING CESSATION THERAPY
     Dosage: 0.5 MG, 1X/DAY
     Route: 048
     Dates: start: 20120601, end: 20120101
  8. TOFRANIL [Concomitant]
     Dosage: UNK
     Dates: start: 20120801
  9. NEURONTIN [Concomitant]
     Indication: DIABETIC NEUROPATHY
     Dosage: UNK

REACTIONS (2)
  - SYNCOPE [None]
  - DIZZINESS [None]
